FAERS Safety Report 21598293 (Version 2)
Quarter: 2022Q4

REPORT INFORMATION
  Report Type: Spontaneous
  Country: NL (occurrence: NL)
  Receive Date: 20221115
  Receipt Date: 20221123
  Transmission Date: 20230112
  Serious: Yes (Other)
  Sender: FDA-Public Use
  Company Number: NL-OTSUKA-2022_050305

PATIENT
  Sex: Male
  Weight: 103 kg

DRUGS (1)
  1. ABILIFY [Suspect]
     Active Substance: ARIPIPRAZOLE
     Indication: Product used for unknown indication
     Dosage: 15 MG
     Route: 065

REACTIONS (9)
  - Brain injury [Unknown]
  - Brain contusion [Unknown]
  - Renal disorder [Unknown]
  - Haemoglobin decreased [Unknown]
  - Heart rate decreased [Unknown]
  - Psychotic disorder [Unknown]
  - Blood glucose abnormal [Unknown]
  - Epistaxis [Unknown]
  - Weight increased [Unknown]
